FAERS Safety Report 21360476 (Version 1)
Quarter: 2022Q3

REPORT INFORMATION
  Report Type: Spontaneous
  Country: US (occurrence: None)
  Receive Date: 20220921
  Receipt Date: 20220921
  Transmission Date: 20221027
  Serious: No
  Sender: FDA-Public Use
  Company Number: None

PATIENT
  Age: 80 Year
  Sex: Female
  Weight: 67.59 kg

DRUGS (8)
  1. INLYTA [Suspect]
     Active Substance: AXITINIB
     Indication: Renal cancer
     Dosage: OTHER FREQUENCY : Q12HOURS;?
     Route: 048
     Dates: start: 202201
  2. LEVOTHYROXINE [Concomitant]
  3. LIDOCAINE VISCOUS [Concomitant]
  4. LOSARTAN [Concomitant]
  5. MAALOX [Concomitant]
  6. NYSTATIN [Concomitant]
  7. ONDANSETRON [Concomitant]
  8. SIMVASTATIN [Concomitant]

REACTIONS (1)
  - COVID-19 [None]
